FAERS Safety Report 4328655-0 (Version None)
Quarter: 2004Q1

REPORT INFORMATION
  Report Type: 
  Country: None (occurrence: None)
  Receive Date: 20040329
  Receipt Date: 20040310
  Transmission Date: 20041129
  Serious: Yes (Death)
  Sender: FDA-Public Use
  Company Number: 601134

PATIENT
  Age: 78 Year
  Sex: Female

DRUGS (3)
  1. GAMMAGARD S/D [Suspect]
     Indication: INFLAMMATION
     Dosage: 40 GM; BIW; INTRAVENOUS
     Route: 042
     Dates: start: 20031229, end: 20031231
  2. NAPROSYN [Concomitant]
  3. LASIX [Concomitant]

REACTIONS (5)
  - CEREBROVASCULAR ACCIDENT [None]
  - COMA [None]
  - HEADACHE [None]
  - INFUSION RELATED REACTION [None]
  - NAUSEA [None]
